FAERS Safety Report 7627641-2 (Version None)
Quarter: 2011Q3

REPORT INFORMATION
  Report Type: 
  Country: None (occurrence: None)
  Receive Date: 20110721
  Receipt Date: 20110711
  Transmission Date: 20111222
  Serious: Yes (Other)
  Sender: FDA-Public Use
  Company Number: US-MYLANLABS-2011S1011046

PATIENT
  Age: 27 Year
  Sex: Female

DRUGS (4)
  1. AMNESTEEM [Suspect]
     Route: 048
     Dates: start: 20101129
  2. AMNESTEEM [Suspect]
     Route: 048
     Dates: end: 20110512
  3. AMNESTEEM [Suspect]
     Route: 048
     Dates: end: 20110512
  4. AMNESTEEM [Suspect]
     Route: 048
     Dates: start: 20101129

REACTIONS (2)
  - MATERNAL EXPOSURE BEFORE PREGNANCY [None]
  - ABORTION SPONTANEOUS [None]
